FAERS Safety Report 5295684-2 (Version None)
Quarter: 2007Q2

REPORT INFORMATION
  Report Type: 
  Country: None (occurrence: None)
  Receive Date: 20070410
  Receipt Date: 20070410
  Transmission Date: 20071010
  Serious: Yes (Life-Threatening, Hospitalization)
  Sender: FDA-Public Use
  Company Number: None

PATIENT
  Sex: Female
  Weight: 63 kg

DRUGS (2)
  1. AVASTIN [Suspect]
     Indication: LUNG CANCER METASTATIC
     Dosage: EVERY 3 WEEKS   IV BOLUS
     Route: 040
     Dates: start: 20061215, end: 20070321
  2. ALIMTA [Concomitant]

REACTIONS (3)
  - ABDOMINAL SEPSIS [None]
  - DIVERTICULITIS [None]
  - LARGE INTESTINE PERFORATION [None]
